FAERS Safety Report 21384926 (Version 1)
Quarter: 2022Q3

REPORT INFORMATION
  Report Type: Spontaneous
  Country: US (occurrence: US)
  Receive Date: 20220928
  Receipt Date: 20220928
  Transmission Date: 20221027
  Serious: No
  Sender: FDA-Public Use
  Company Number: US-AVEO ONCOLOGY-2022-AVEO-US000246

PATIENT

DRUGS (38)
  1. FOTIVDA [Suspect]
     Active Substance: TIVOZANIB HYDROCHLORIDE
     Indication: Renal cell carcinoma
     Dosage: 1.34 MG, DAILY FOR 21 DAYS WITH 7 DAYS OFF (28-DAY CYCLE)
     Route: 048
     Dates: start: 20220627, end: 202207
  2. FOTIVDA [Suspect]
     Active Substance: TIVOZANIB HYDROCHLORIDE
     Dosage: 1.34 MG, DAILY FOR 21 DAYS WITH 7 DAYS OFF (28-DAY CYCLE)
     Route: 048
     Dates: start: 202207
  3. ZOLPIDEM TARTRATE [Concomitant]
     Active Substance: ZOLPIDEM TARTRATE
  4. VITAMIN D [Concomitant]
     Active Substance: VITAMIN D NOS
  5. ULORIC [Concomitant]
     Active Substance: FEBUXOSTAT
  6. TYLENOL WITH CODEINE [Concomitant]
     Active Substance: ACETAMINOPHEN\CODEINE PHOSPHATE
  7. ASPIRIN [Concomitant]
     Active Substance: ASPIRIN
  8. Tab-A-Vite [Concomitant]
  9. ESOMEPRAZOLE MAGNESIUM [Concomitant]
     Active Substance: ESOMEPRAZOLE MAGNESIUM
  10. REGENECARE [Concomitant]
  11. CETIRIZINE [Concomitant]
     Active Substance: CETIRIZINE HYDROCHLORIDE
  12. DICLOFENAC SODIUM [Concomitant]
     Active Substance: DICLOFENAC SODIUM
  13. PRAVASTATIN SODIUM [Concomitant]
     Active Substance: PRAVASTATIN SODIUM
  14. Odorless garlic [Concomitant]
  15. NORCO [Concomitant]
     Active Substance: ACETAMINOPHEN\HYDROCODONE BITARTRATE
  16. MUPIROCIN [Concomitant]
     Active Substance: MUPIROCIN
  17. VITAMINS [Concomitant]
     Active Substance: VITAMINS
  18. METOLAZONE [Concomitant]
     Active Substance: METOLAZONE
  19. MEGESTROL ACETATE [Concomitant]
     Active Substance: MEGESTROL ACETATE
  20. LINZESS [Concomitant]
     Active Substance: LINACLOTIDE
  21. LEVOTHYROXINE SODIUM [Concomitant]
     Active Substance: LEVOTHYROXINE SODIUM
  22. LACTULOSE [Concomitant]
     Active Substance: LACTULOSE
  23. FERROUS SULFATE [Concomitant]
     Active Substance: FERROUS SULFATE
  24. HYDRALAZINE HCL [Concomitant]
     Active Substance: HYDRALAZINE HYDROCHLORIDE
  25. HUMALOG [Concomitant]
     Active Substance: INSULIN LISPRO
  26. CLONIDINE [Concomitant]
     Active Substance: CLONIDINE
  27. CLONIDINE HYDROCHLORIDE [Concomitant]
     Active Substance: CLONIDINE HYDROCHLORIDE
  28. CARDIZEM [Concomitant]
     Active Substance: DILTIAZEM HYDROCHLORIDE
  29. CALCITRIOL [Concomitant]
     Active Substance: CALCITRIOL
  30. DILTIAZEM [Concomitant]
     Active Substance: DILTIAZEM
  31. ERGOCALCIFEROL [Concomitant]
     Active Substance: ERGOCALCIFEROL
  32. ESOMEPRAZOLE [Concomitant]
     Active Substance: ESOMEPRAZOLE
  33. FEBUXOSTAT [Concomitant]
     Active Substance: FEBUXOSTAT
  34. GARLIC OIL [Concomitant]
     Active Substance: GARLIC OIL
  35. TYLENOL [Concomitant]
     Active Substance: ACETAMINOPHEN
  36. BISACODYL [Concomitant]
     Active Substance: BISACODYL
  37. PENTOXIFYLLINE [Concomitant]
     Active Substance: PENTOXIFYLLINE
  38. SODIUM BICARBONATE [Concomitant]
     Active Substance: SODIUM BICARBONATE

REACTIONS (7)
  - Blood pressure increased [Recovered/Resolved]
  - Fatigue [Recovering/Resolving]
  - Pain in extremity [Unknown]
  - Oral pain [Not Recovered/Not Resolved]
  - Eating disorder [Not Recovered/Not Resolved]
  - Gingival bleeding [Not Recovered/Not Resolved]
  - Tongue discomfort [Not Recovered/Not Resolved]

NARRATIVE: CASE EVENT DATE: 20220629
